FAERS Safety Report 6769275-8 (Version None)
Quarter: 2010Q2

REPORT INFORMATION
  Report Type: 
  Country: None (occurrence: None)
  Receive Date: 20100615
  Receipt Date: 20100607
  Transmission Date: 20101027
  Serious: Yes (Life-Threatening, Hospitalization)
  Sender: FDA-Public Use
  Company Number: JP-JNJFOC-20100603882

PATIENT
  Sex: Male

DRUGS (20)
  1. CODEINE SULFATE [Suspect]
     Indication: DRUG USE FOR UNKNOWN INDICATION
     Route: 065
  2. LOPERAMIDE HYDROCHLORIDE [Suspect]
     Indication: DRUG USE FOR UNKNOWN INDICATION
     Route: 065
  3. ACETAMINOPHEN [Suspect]
     Route: 065
  4. ACETAMINOPHEN [Suspect]
     Indication: DRUG USE FOR UNKNOWN INDICATION
     Route: 065
  5. OFLOXACIN [Suspect]
     Indication: DRUG USE FOR UNKNOWN INDICATION
     Route: 065
  6. CEFDINIR [Suspect]
     Indication: ENTEROCOLITIS
     Route: 048
  7. CEFDINIR [Suspect]
     Route: 048
  8. CEFDINIR [Suspect]
     Indication: UPPER RESPIRATORY TRACT INFECTION
     Route: 048
  9. CEFDINIR [Suspect]
     Route: 048
  10. TIQUIZIUM BROMIDE [Suspect]
     Indication: DRUG USE FOR UNKNOWN INDICATION
     Route: 065
  11. MEFENAMIC ACID [Suspect]
     Indication: DRUG USE FOR UNKNOWN INDICATION
     Route: 065
  12. SCOPOLIA EXTRACT [Suspect]
     Indication: DRUG USE FOR UNKNOWN INDICATION
     Route: 065
  13. AMBROXOL HYDROCHLORIDE [Suspect]
     Indication: DRUG USE FOR UNKNOWN INDICATION
     Route: 065
  14. LOXOPROFEN SODIUM [Suspect]
     Indication: DRUG USE FOR UNKNOWN INDICATION
     Route: 065
  15. PL GRAN [Suspect]
     Indication: DRUG USE FOR UNKNOWN INDICATION
     Route: 065
  16. DICLOFENAC SODIUM [Suspect]
     Indication: DRUG USE FOR UNKNOWN INDICATION
     Route: 065
  17. ALDIOXA [Suspect]
     Indication: DRUG USE FOR UNKNOWN INDICATION
     Route: 065
  18. SALICYLAMIDE [Suspect]
     Indication: DRUG USE FOR UNKNOWN INDICATION
     Route: 065
  19. CAFFEINE [Suspect]
     Indication: DRUG USE FOR UNKNOWN INDICATION
     Route: 065
  20. PROMETHAZINE [Suspect]
     Indication: DRUG USE FOR UNKNOWN INDICATION
     Route: 065

REACTIONS (3)
  - DISSEMINATED INTRAVASCULAR COAGULATION [None]
  - PORTAL VEIN PHLEBITIS [None]
  - PORTAL VEIN THROMBOSIS [None]
